FAERS Safety Report 6512180-2 (Version None)
Quarter: 2009Q4

REPORT INFORMATION
  Report Type: 
  Country: None (occurrence: None)
  Receive Date: 20091216
  Receipt Date: 20091201
  Transmission Date: 20100525
  Serious: Yes (Other)
  Sender: FDA-Public Use
  Company Number: B0613674A

PATIENT
  Sex: 0

DRUGS (2)
  1. LAPATINIB (FORMULATION UNKNOWN) (GENERIC)(LAPATINIB) [Suspect]
     Indication: NEOPLASM
     Dosage: 1000 MG/ PER DAY
  2. DASATINIB (FORMULATION UNKNOW) ( DASATINIB ) [Suspect]
     Indication: NEOPLASM
     Dosage: 140 MG/ PER DAY

REACTIONS (3)
  - DRUG TOXICITY [None]
  - HYPERMAGNESAEMIA [None]
  - PLATELET COUNT DECREASED [None]
